FAERS Safety Report 15956063 (Version 1)
Quarter: 2019Q1

REPORT INFORMATION
  Report Type: Spontaneous
  Country: US (occurrence: US)
  Receive Date: 20190213
  Receipt Date: 20190213
  Transmission Date: 20190417
  Serious: Yes (Hospitalization, Other)
  Sender: FDA-Public Use
  Company Number: US-009507513-1902USA003180

PATIENT
  Age: 26 Year
  Sex: Male

DRUGS (1)
  1. KEYTRUDA [Suspect]
     Active Substance: PEMBROLIZUMAB
     Dosage: SINGLE TREATMENT
     Dates: start: 201812

REACTIONS (8)
  - Pneumonitis [Unknown]
  - Dyspnoea [Unknown]
  - Asthenia [Unknown]
  - Pericardial mass [Unknown]
  - Arrhythmia [Unknown]
  - Respiratory disorder [Unknown]
  - Heart rate increased [Unknown]
  - Lung infection [Unknown]
